FAERS Safety Report 15993831 (Version 1)
Quarter: 2019Q1

REPORT INFORMATION
  Report Type: Other
  Country: ES (occurrence: ES)
  Receive Date: 20190222
  Receipt Date: 20190222
  Transmission Date: 20190418
  Serious: Yes (Other)
  Sender: FDA-Public Use
  Company Number: ES-CELLTRION INC.-2019ES018707

PATIENT

DRUGS (11)
  1. PARACETAMOL 1G [Concomitant]
     Active Substance: ACETAMINOPHEN
     Indication: PREMEDICATION
     Dosage: 1 G, 1 TOTAL (PARACETAMOL 1 GR)
     Route: 042
     Dates: start: 20190109, end: 20190109
  2. LEFLUNOMIDA 20 MG [Concomitant]
     Dosage: UNK
  3. URBASON [Concomitant]
     Active Substance: METHYLPREDNISOLONE
     Indication: PREMEDICATION
     Dosage: 100 MG, 1 TOTAL (URBASON 100 MG)
     Route: 042
     Dates: start: 20190109, end: 20190109
  4. NEOBRUFEN 600 MG [Concomitant]
     Dosage: UNK
  5. TRUXIMA [Suspect]
     Active Substance: RITUXIMAB-ABBS
     Indication: SJOGREN^S SYNDROME
     Dosage: 2 G EVERY 6 MONTHS
     Route: 042
     Dates: start: 20180628, end: 20190109
  6. RABEPRAZOL 20 MG [Concomitant]
     Dosage: UNK
  7. ARCOXIA [Concomitant]
     Active Substance: ETORICOXIB
     Dosage: UNK
  8. TIRODRIL 5MG [Concomitant]
     Dosage: UNK
  9. DOLQUINE 200 MG [Concomitant]
     Dosage: UNK
  10. POLARAMINE [Concomitant]
     Active Substance: DEXCHLORPHENIRAMINE MALEATE
     Indication: PREMEDICATION
     Dosage: UNK, 1 TOTAL
     Route: 042
     Dates: start: 20190109, end: 20190109
  11. TORASEMIDA 10 MG [Concomitant]
     Dosage: UNK

REACTIONS (3)
  - Dysphagia [Recovered/Resolved]
  - Product use in unapproved indication [Unknown]
  - Dysphonia [Recovered/Resolved]

NARRATIVE: CASE EVENT DATE: 20190109
